FAERS Safety Report 6522459-6 (Version None)
Quarter: 2009Q4

REPORT INFORMATION
  Report Type: 
  Country: None (occurrence: None)
  Receive Date: 20091230
  Receipt Date: 20091222
  Transmission Date: 20100525
  Serious: Yes (Other)
  Sender: FDA-Public Use
  Company Number: US-AMGEN-QUU382163

PATIENT
  Sex: Female

DRUGS (2)
  1. ENBREL [Suspect]
     Indication: RHEUMATOID ARTHRITIS
     Route: 058
     Dates: start: 20081104
  2. PLAQUENIL [Concomitant]
     Route: 048

REACTIONS (6)
  - CONTUSION [None]
  - DELIRIUM [None]
  - IMPAIRED HEALING [None]
  - NASOPHARYNGITIS [None]
  - RASH [None]
  - WOUND INFECTION [None]
